FAERS Safety Report 5856199-3 (Version None)
Quarter: 2008Q3

REPORT INFORMATION
  Report Type: 
  Country: None (occurrence: None)
  Receive Date: 20080825
  Receipt Date: 20080821
  Transmission Date: 20090109
  Serious: Yes (Other)
  Sender: FDA-Public Use
  Company Number: A0743734A

PATIENT
  Age: 79 Year
  Sex: Male

DRUGS (4)
  1. CEFTIN [Suspect]
     Indication: LUNG INFECTION
     Dosage: 500MG TWICE PER DAY
     Route: 048
     Dates: start: 20080714
  2. ATIVAN [Concomitant]
  3. LEVOTHROID [Concomitant]
  4. REMERON [Concomitant]

REACTIONS (2)
  - DEAFNESS [None]
  - TINNITUS [None]
